FAERS Safety Report 5310456-8 (Version None)
Quarter: 2007Q2

REPORT INFORMATION
  Report Type: 
  Country: None (occurrence: None)
  Receive Date: 20070427
  Receipt Date: 20070423
  Transmission Date: 20071010
  Serious: Yes (Hospitalization)
  Sender: FDA-Public Use
  Company Number: FR-PFIZER INC-2007032122

PATIENT
  Age: 63 Year
  Sex: Female

DRUGS (4)
  1. XANAX [Suspect]
     Indication: PSYCHOTIC DISORDER
     Route: 048
  2. ACEPROMETAZINE [Suspect]
     Indication: PSYCHOTIC DISORDER
     Dosage: FREQ:1 DOSE FORM
     Route: 048
  3. EQUANIL [Suspect]
     Indication: PSYCHOTIC DISORDER
     Route: 048
  4. LAROXYL [Suspect]
     Indication: PSYCHOTIC DISORDER
     Route: 048

REACTIONS (4)
  - CLAVICLE FRACTURE [None]
  - FALL [None]
  - OVERDOSE [None]
  - PATHOLOGICAL FRACTURE [None]
